FAERS Safety Report 11201411 (Version 1)
Quarter: 2015Q2

REPORT INFORMATION
  Report Type: Spontaneous
  Country: AT (occurrence: None)
  Receive Date: 20150617
  Receipt Date: 20150617
  Transmission Date: 20150821
  Serious: Yes (Life-Threatening)
  Sender: FDA-Public Use
  Company Number: FK201502797

PATIENT
  Age: 24 Year
  Sex: Female
  Weight: 40 kg

DRUGS (2)
  1. FUROSEMIDE (MANUFACTURER UNKNOWN) (FUROSEMIDE) (FUROSEMIDE) [Suspect]
     Active Substance: FUROSEMIDE
     Indication: PRODUCT USED FOR UNKNOWN INDICATION
  2. LAXATIVE (SENNOSIDES A AND B) [Suspect]
     Active Substance: SENNOSIDES A AND B
     Indication: PRODUCT USED FOR UNKNOWN INDICATION

REACTIONS (8)
  - Electrolyte imbalance [None]
  - Hypokalaemia [None]
  - Drug abuse [None]
  - Renal failure [None]
  - Rhabdomyolysis [None]
  - Ventricular fibrillation [None]
  - Generalised tonic-clonic seizure [None]
  - Cardiac disorder [None]
